FAERS Safety Report 5940772-8 (Version None)
Quarter: 2008Q4

REPORT INFORMATION
  Report Type: 
  Country: None (occurrence: None)
  Receive Date: 20081103
  Receipt Date: 20081103
  Transmission Date: 20090506
  Serious: Yes (Hospitalization)
  Sender: FDA-Public Use
  Company Number: None

PATIENT
  Age: 67 Year
  Sex: Male

DRUGS (1)
  1. FUROSEMIDE [Suspect]
     Indication: CARDIOMYOPATHY
     Dosage: 80 MG ONCE IV
     Route: 042
     Dates: start: 20080526, end: 20080526

REACTIONS (3)
  - DYSPNOEA [None]
  - RESPIRATORY DEPRESSION [None]
  - SWOLLEN TONGUE [None]
